FAERS Safety Report 23635771 (Version 1)
Quarter: 2024Q1

REPORT INFORMATION
  Report Type: Spontaneous
  Country: US (occurrence: US)
  Receive Date: 20240315
  Receipt Date: 20240315
  Transmission Date: 20240410
  Serious: Yes (Other)
  Sender: FDA-Public Use
  Company Number: US-INSMED, INC.-2024-00968-US

PATIENT
  Sex: Male

DRUGS (4)
  1. ARIKAYCE [Suspect]
     Active Substance: AMIKACIN
     Indication: Pneumonia necrotising
     Dosage: UNK, UNK
     Route: 055
  2. AZITHROMYCIN [Concomitant]
     Active Substance: AZITHROMYCIN
     Indication: Pneumonia necrotising
     Dosage: UNK, UNK
     Route: 065
     Dates: start: 202201
  3. ETHAMBUTOL [Concomitant]
     Active Substance: ETHAMBUTOL HYDROCHLORIDE
     Indication: Pneumonia necrotising
     Dosage: UNK, UNK
     Route: 065
     Dates: start: 202201
  4. RIFABUTIN [Concomitant]
     Active Substance: RIFABUTIN
     Indication: Pneumonia necrotising
     Dosage: UNK, UNK
     Route: 065
     Dates: start: 202201

REACTIONS (5)
  - Pulmonary cavitation [Unknown]
  - Bronchopleural fistula [Unknown]
  - Infectious pleural effusion [Unknown]
  - Lung disorder [Unknown]
  - Off label use [Unknown]
